FAERS Safety Report 12126992 (Version 1)
Quarter: 2016Q1

REPORT INFORMATION
  Report Type: Report from Study
  Country: US (occurrence: US)
  Receive Date: 20160229
  Receipt Date: 20160229
  Transmission Date: 20160526
  Serious: Yes (Hospitalization, Other)
  Sender: FDA-Public Use
  Company Number: US-AMGEN-USASL2016023901

PATIENT
  Age: 67 Year
  Sex: Male

DRUGS (1)
  1. ENBREL [Suspect]
     Active Substance: ETANERCEPT
     Indication: PSORIATIC ARTHROPATHY
     Dosage: 50 MG, QWK
     Route: 065

REACTIONS (8)
  - Hepatitis C [Unknown]
  - Upper limb fracture [Unknown]
  - Fall [Unknown]
  - Tuberculosis [Unknown]
  - Hip fracture [Unknown]
  - Pain [Not Recovered/Not Resolved]
  - Hospitalisation [Unknown]
  - Neoplasm malignant [Unknown]
